FAERS Safety Report 12785276 (Version 4)
Quarter: 2016Q4

REPORT INFORMATION
  Report Type: Spontaneous
  Country: FR (occurrence: FR)
  Receive Date: 20160927
  Receipt Date: 20161115
  Transmission Date: 20170207
  Serious: Yes (Other)
  Sender: FDA-Public Use
  Company Number: FR-SA-2016SA173157

PATIENT
  Age: 41 Year
  Sex: Female

DRUGS (2)
  1. AVONEX [Concomitant]
     Active Substance: INTERFERON BETA-1A
  2. AUBAGIO [Suspect]
     Active Substance: TERIFLUNOMIDE
     Indication: MULTIPLE SCLEROSIS
     Route: 065
     Dates: start: 2016

REACTIONS (6)
  - Constipation [Recovering/Resolving]
  - Optic neuritis [Unknown]
  - Alopecia [Unknown]
  - Drug ineffective [Unknown]
  - Candida infection [Unknown]
  - Multiple sclerosis relapse [Unknown]
